FAERS Safety Report 18746891 (Version 1)
Quarter: 2021Q1

REPORT INFORMATION
  Report Type: Spontaneous
  Country: FR (occurrence: FR)
  Receive Date: 20210115
  Receipt Date: 20210115
  Transmission Date: 20210419
  Serious: Yes (Hospitalization)
  Sender: FDA-Public Use
  Company Number: FR-TEVA-2021-FR-1869711

PATIENT
  Age: 76 Year
  Sex: Female

DRUGS (16)
  1. BISOCE 5 MG, COMPRIME PELLICULE SECABLE [Concomitant]
     Active Substance: BISOPROLOL FUMARATE
     Route: 048
  2. OXYCODONE [Suspect]
     Active Substance: OXYCODONE
     Indication: ARTHRALGIA
     Dosage: 240 MG
     Route: 048
  3. METHOTREXATE. [Concomitant]
     Active Substance: METHOTREXATE
     Dosage: 15 MG
     Route: 065
  4. LANSOPRAZOLE. [Concomitant]
     Active Substance: LANSOPRAZOLE
     Route: 048
  5. OXYNORMORO 20 MG, COMPRIME ORODISPERSIBLE [Suspect]
     Active Substance: OXYCODONE HYDROCHLORIDE
     Indication: ARTHRALGIA
     Dosage: 1 DF
     Route: 048
  6. FUROSEMIDE. [Concomitant]
     Active Substance: FUROSEMIDE
     Route: 048
  7. CORTANCYL 5 MG, COMPRIME [Concomitant]
     Active Substance: PREDNISONE
     Route: 048
  8. CHOLECALCIFEROL [Concomitant]
     Active Substance: CHOLECALCIFEROL
     Route: 048
  9. ACIDE FOLINIQUE [Concomitant]
     Active Substance: LEUCOVORIN
     Route: 048
  10. PREVISCAN 20 MG, COMPRIME SECABLE [Concomitant]
     Active Substance: FLUINDIONE
     Route: 048
  11. XATRAL LP 10 MG, COMPRIME A LIBERATION PROLONGEE [Concomitant]
     Active Substance: ALFUZOSIN
     Route: 048
  12. PREGABALIN. [Suspect]
     Active Substance: PREGABALIN
     Indication: ARTHRALGIA
     Route: 048
  13. DOLIPRANE [Concomitant]
     Active Substance: ACETAMINOPHEN
     Route: 048
  14. DIFFU K [Concomitant]
     Active Substance: POTASSIUM CHLORIDE
     Route: 048
  15. ENBREL [Concomitant]
     Active Substance: ETANERCEPT
     Dosage: 1 DF
     Route: 058
  16. ORACILLINE [Concomitant]
     Active Substance: PENICILLIN V
     Route: 048

REACTIONS (7)
  - Hypersomnia [Recovered/Resolved]
  - Confusional state [Recovered/Resolved]
  - Constipation [Recovered/Resolved]
  - Delirium [Recovered/Resolved]
  - Somnolence [Recovered/Resolved]
  - Disorientation [Recovered/Resolved]
  - Hallucination, visual [Recovered/Resolved]

NARRATIVE: CASE EVENT DATE: 20200203
